FAERS Safety Report 4784168-3 (Version None)
Quarter: 2005Q3

REPORT INFORMATION
  Report Type: 
  Country: None (occurrence: None)
  Receive Date: 20050930
  Receipt Date: 20050823
  Transmission Date: 20060218
  Serious: Yes (Other)
  Sender: FDA-Public Use
  Company Number: US-GLAXOSMITHKLINE-A0571441A

PATIENT
  Age: 46 Year
  Sex: Female

DRUGS (29)
  1. FLOVENT [Suspect]
     Indication: ASTHMA
     Dosage: 2PUFF TWICE PER DAY
     Route: 055
  2. VALIUM [Concomitant]
  3. ASPIRIN [Concomitant]
  4. BACLOFEN [Concomitant]
  5. CELEBREX [Concomitant]
  6. COLACE [Concomitant]
  7. VITAMIN [Concomitant]
  8. LAMICTAL [Concomitant]
  9. NIFEREX FORTE [Concomitant]
  10. OMEPRAZOLE [Concomitant]
  11. PREMARIN [Concomitant]
  12. PROVIGIL [Concomitant]
  13. SAW PALMETTO [Concomitant]
  14. WELLBUTRIN [Concomitant]
  15. RISPERDAL [Concomitant]
  16. TOPAMAX [Concomitant]
  17. ACYCLOVIR [Concomitant]
  18. BENTYL [Concomitant]
  19. DARVOCET [Concomitant]
  20. FIORINAL [Concomitant]
  21. IMITREX [Concomitant]
  22. HYDROCHLOROTHIAZIDE [Concomitant]
  23. POTASSIUM CHLORIDE [Concomitant]
  24. PHENERGAN [Concomitant]
  25. IBUPROFEN [Concomitant]
  26. TYLENOL (CAPLET) [Concomitant]
  27. PREMARIN [Concomitant]
  28. PROVENTIL [Concomitant]
  29. SUDAFED 12 HOUR [Concomitant]

REACTIONS (1)
  - ASTHMA [None]
